FAERS Safety Report 14008904 (Version 1)
Quarter: 2017Q3

REPORT INFORMATION
  Report Type: Spontaneous
  Country: DE (occurrence: DE)
  Receive Date: 20170925
  Receipt Date: 20170925
  Transmission Date: 20171128
  Serious: Yes (Other)
  Sender: FDA-Public Use
  Company Number: DE-SA-2017SA170995

PATIENT
  Age: 25 Year
  Sex: Female

DRUGS (1)
  1. FERRLECIT [Suspect]
     Active Substance: SODIUM FERRIC GLUCONATE COMPLEX
     Route: 042

REACTIONS (6)
  - Hyperhidrosis [Unknown]
  - Motor dysfunction [Unknown]
  - Peripheral circulatory failure [Unknown]
  - Dyspnoea [Unknown]
  - Limb discomfort [Unknown]
  - Medication monitoring error [Unknown]

NARRATIVE: CASE EVENT DATE: 20170823
